FAERS Safety Report 7734813-5 (Version None)
Quarter: 2011Q3

REPORT INFORMATION
  Report Type: 
  Country: None (occurrence: None)
  Receive Date: 20110907
  Receipt Date: 20110901
  Transmission Date: 20111222
  Serious: Yes (Other)
  Sender: FDA-Public Use
  Company Number: US-CEPHALON-2011004599

PATIENT
  Sex: Female
  Weight: 75 kg

DRUGS (3)
  1. PROVIGIL [Suspect]
     Indication: SEDATION
     Route: 048
     Dates: start: 20110816, end: 20110826
  2. PHENOBARBITAL TAB [Concomitant]
  3. LAMICTAL [Concomitant]

REACTIONS (2)
  - AURA [None]
  - PETIT MAL EPILEPSY [None]
